FAERS Safety Report 6695971-7 (Version None)
Quarter: 2010Q2

REPORT INFORMATION
  Report Type: 
  Country: None (occurrence: None)
  Receive Date: 20100423
  Receipt Date: 20100423
  Transmission Date: 20101027
  Serious: Yes (Life-Threatening, Hospitalization)
  Sender: FDA-Public Use
  Company Number: None

PATIENT
  Age: 74 Year
  Sex: Male
  Weight: 77.1115 kg

DRUGS (1)
  1. PLAVIX [Suspect]

REACTIONS (3)
  - BLOOD DISORDER [None]
  - PROCEDURAL COMPLICATION [None]
  - UNEVALUABLE EVENT [None]
